FAERS Safety Report 11402625 (Version 1)
Quarter: 2015Q3

REPORT INFORMATION
  Report Type: Spontaneous
  Country: US (occurrence: US)
  Receive Date: 20150821
  Receipt Date: 20150821
  Transmission Date: 20151125
  Serious: No
  Sender: FDA-Public Use
  Company Number: US-ROCHE-1321907

PATIENT
  Sex: Male

DRUGS (4)
  1. RIBAVIRIN. [Suspect]
     Active Substance: RIBAVIRIN
     Dosage: 600MG IN MORNING 400MG AT NIGHT
     Route: 048
     Dates: start: 2010
  2. PEGASYS [Suspect]
     Active Substance: PEGINTERFERON ALFA-2A
     Route: 058
     Dates: start: 2010
  3. RIBAVIRIN. [Suspect]
     Active Substance: RIBAVIRIN
     Indication: HEPATITIS C
     Dosage: 600MG IN MORNING 400MG AT NIGHT. PAST THERAPY
     Route: 048
     Dates: start: 2007
  4. PEGASYS [Suspect]
     Active Substance: PEGINTERFERON ALFA-2A
     Indication: HEPATITIS C
     Dosage: PAST THERAPY
     Route: 058
     Dates: start: 2007

REACTIONS (4)
  - Hepatic enzyme increased [Unknown]
  - Malaise [Recovered/Resolved]
  - Jaundice [Unknown]
  - Drug ineffective [Unknown]
